FAERS Safety Report 7113763-1 (Version None)
Quarter: 2010Q4

REPORT INFORMATION
  Report Type: 
  Country: None (occurrence: None)
  Receive Date: 20101119
  Receipt Date: 20101108
  Transmission Date: 20110411
  Serious: No
  Sender: FDA-Public Use
  Company Number: US-B.I. PHARMACEUTICALS,INC./RIDGEFIELD-2010-BP-12503BP

PATIENT
  Sex: Male

DRUGS (5)
  1. COMBIVENT [Suspect]
     Indication: CHRONIC OBSTRUCTIVE PULMONARY DISEASE
     Dosage: 8 PUF
     Route: 055
     Dates: start: 20050101
  2. SPIRIVA [Concomitant]
     Indication: CHRONIC OBSTRUCTIVE PULMONARY DISEASE
     Route: 055
     Dates: start: 20090701
  3. COUMADIN [Concomitant]
     Indication: AORTIC VALVE REPLACEMENT
     Route: 048
     Dates: start: 19950501
  4. METOPROLOL [Concomitant]
     Indication: HYPERTENSION
     Route: 048
     Dates: start: 19950101
  5. HYDROXYUREA [Concomitant]
     Indication: POLYCYTHAEMIA VERA
     Route: 048
     Dates: start: 20040101

REACTIONS (1)
  - DRUG INEFFECTIVE [None]
